FAERS Safety Report 5316714-5 (Version None)
Quarter: 2007Q2

REPORT INFORMATION
  Report Type: 
  Country: None (occurrence: None)
  Receive Date: 20070501
  Receipt Date: 20070501
  Transmission Date: 20071010
  Serious: Yes (Hospitalization)
  Sender: FDA-Public Use
  Company Number: None

PATIENT
  Sex: Female
  Weight: 56.9 kg

DRUGS (4)
  1. FLUOROURACIL [Suspect]
     Dosage: 5334 MG
  2. BEVACIZUMAB (RHUMAB VEGF) [Suspect]
     Dosage: 608 MG
  3. LEUCOVORIN CALCIUM [Suspect]
     Dosage: 1340 MG
  4. ELOXATIN [Suspect]
     Dosage: 284 MG

REACTIONS (7)
  - CONDITION AGGRAVATED [None]
  - CONFUSIONAL STATE [None]
  - DEPRESSION [None]
  - DIARRHOEA [None]
  - HYPOKALAEMIA [None]
  - HYPOTHYROIDISM [None]
  - URINARY TRACT INFECTION [None]
